FAERS Safety Report 24004116 (Version 1)
Quarter: 2024Q2

REPORT INFORMATION
  Report Type: Spontaneous
  Country: US (occurrence: US)
  Receive Date: 20240624
  Receipt Date: 20240624
  Transmission Date: 20240715
  Serious: No
  Sender: FDA-Public Use
  Company Number: US-BRISTOL-MYERS SQUIBB COMPANY-2024-100628

PATIENT
  Age: 68 Year
  Sex: Female
  Weight: 54.88 kg

DRUGS (1)
  1. REVLIMID [Suspect]
     Active Substance: LENALIDOMIDE
     Indication: Plasma cell myeloma
     Dosage: FREQ; DAILY FOR 21 DAYS

REACTIONS (5)
  - Hypotension [Unknown]
  - Heart rate decreased [Unknown]
  - Constipation [Unknown]
  - Peripheral swelling [Unknown]
  - Muscle spasms [Unknown]
